FAERS Safety Report 9165280 (Version 2)
Quarter: 2013Q3

REPORT INFORMATION
  Report Type: Report from Study
  Country: CA (occurrence: CA)
  Receive Date: 20130315
  Receipt Date: 20130822
  Transmission Date: 20140515
  Serious: Yes (Hospitalization, Other)
  Sender: FDA-Public Use
  Company Number: CA-JNJFOC-20121106145

PATIENT
  Age: 68 Year
  Sex: Male
  Weight: 86 kg

DRUGS (13)
  1. REMICADE [Suspect]
     Indication: RHEUMATOID ARTHRITIS
     Route: 042
     Dates: start: 20110706
  2. REMICADE [Suspect]
     Indication: RHEUMATOID ARTHRITIS
     Route: 042
     Dates: start: 20030207
  3. REMICADE [Suspect]
     Indication: RHEUMATOID ARTHRITIS
     Route: 042
     Dates: end: 20121005
  4. METHOTREXATE [Suspect]
     Indication: PRODUCT USED FOR UNKNOWN INDICATION
     Route: 065
     Dates: start: 20070327, end: 20120801
  5. METHOTREXATE [Suspect]
     Indication: PRODUCT USED FOR UNKNOWN INDICATION
     Route: 065
     Dates: start: 19900101, end: 20060613
  6. ARAVA [Suspect]
     Indication: PRODUCT USED FOR UNKNOWN INDICATION
     Route: 065
     Dates: start: 20060802, end: 20070313
  7. PREDNISONE [Concomitant]
     Dosage: DECRESED TO 7.5 MG
     Route: 065
     Dates: start: 20030219
  8. PREDNISONE [Concomitant]
     Route: 065
  9. RAMIPRIL [Concomitant]
     Route: 065
  10. CELEBREX [Concomitant]
     Dosage: MAINTENENCE
     Route: 065
     Dates: start: 20121005
  11. CELEBREX [Concomitant]
     Route: 065
  12. HCT [Concomitant]
     Dosage: 1/2 TABLET ONCE A DAY
     Route: 065
  13. CRESTOR [Concomitant]
     Route: 048

REACTIONS (4)
  - Lung neoplasm malignant [Recovered/Resolved]
  - Knee operation [Unknown]
  - Intestinal polyp [Unknown]
  - Surgery [Unknown]
